FAERS Safety Report 9059520 (Version 2)
Quarter: 2013Q1

REPORT INFORMATION
  Report Type: Spontaneous
  Country: US (occurrence: US)
  Receive Date: 20130212
  Receipt Date: 20130311
  Transmission Date: 20140127
  Serious: Yes (Hospitalization)
  Sender: FDA-Public Use
  Company Number: US-BIOGENIDEC-2013BI011080

PATIENT
  Age: 48 Year
  Sex: Female

DRUGS (7)
  1. TYSABRI [Suspect]
     Indication: MULTIPLE SCLEROSIS
     Route: 042
     Dates: start: 20120802
  2. DILANTIN [Concomitant]
     Indication: CONVULSION
  3. LAMICTAL [Concomitant]
     Indication: CONVULSION
  4. LAMICTAL [Concomitant]
     Indication: CONVULSION
  5. KEPPRA [Concomitant]
     Indication: CONVULSION
  6. KEPPRA [Concomitant]
     Indication: CONVULSION
  7. KEPPRA [Concomitant]
     Indication: CONVULSION

REACTIONS (2)
  - Complex partial seizures [Recovered/Resolved]
  - Central nervous system lesion [Unknown]
